FAERS Safety Report 7912424-6 (Version None)
Quarter: 2011Q4

REPORT INFORMATION
  Report Type: 
  Country: None (occurrence: None)
  Receive Date: 20111114
  Receipt Date: 20111108
  Transmission Date: 20120403
  Serious: Yes (Death)
  Sender: FDA-Public Use
  Company Number: JP-PFIZER INC-2011273497

PATIENT
  Age: 70 Year
  Sex: Male

DRUGS (1)
  1. TEMSIROLIMUS [Suspect]
     Dosage: 25 MG, UNK
     Route: 041
     Dates: start: 20111028

REACTIONS (2)
  - DEATH [None]
  - THERAPEUTIC RESPONSE DECREASED [None]
